FAERS Safety Report 7762944-2 (Version None)
Quarter: 2011Q3

REPORT INFORMATION
  Report Type: 
  Country: None (occurrence: None)
  Receive Date: 20110920
  Receipt Date: 20110913
  Transmission Date: 20111222
  Serious: Yes (Hospitalization, Other)
  Sender: FDA-Public Use
  Company Number: BR-ELI_LILLY_AND_COMPANY-BR201109003518

PATIENT
  Sex: Female
  Weight: 60 kg

DRUGS (1)
  1. HUMALOG [Suspect]
     Indication: TYPE 1 DIABETES MELLITUS
     Dosage: UNK, OTHER
     Route: 058

REACTIONS (2)
  - DIABETIC KETOACIDOSIS [None]
  - BLOOD GLUCOSE INCREASED [None]
